FAERS Safety Report 24988913 (Version 1)
Quarter: 2025Q1

REPORT INFORMATION
  Report Type: Report from Study
  Country: US (occurrence: US)
  Receive Date: 20250220
  Receipt Date: 20250220
  Transmission Date: 20250409
  Serious: Yes (Other)
  Sender: TAKEDA
  Company Number: US-TAKEDA-2024TUS101128

PATIENT
  Age: 54 Year
  Sex: Female

DRUGS (3)
  1. FRUQUINTINIB [Suspect]
     Active Substance: FRUQUINTINIB
     Indication: Colon cancer
     Dosage: 5 MILLIGRAM, QD
     Dates: start: 20241006
  2. FRUQUINTINIB [Suspect]
     Active Substance: FRUQUINTINIB
  3. FRUQUINTINIB [Suspect]
     Active Substance: FRUQUINTINIB

REACTIONS (20)
  - Hepatic cirrhosis [Unknown]
  - Bowel movement irregularity [Recovered/Resolved]
  - Headache [Unknown]
  - Nausea [Recovered/Resolved]
  - Illness [Unknown]
  - Cystitis [Recovered/Resolved]
  - Urine calcium increased [Unknown]
  - Product dose omission issue [Unknown]
  - Renal disorder [Unknown]
  - Abdominal distension [Recovering/Resolving]
  - Flatulence [Recovering/Resolving]
  - Dysstasia [Unknown]
  - Pain [Unknown]
  - Urinary tract infection [Unknown]
  - Back pain [Unknown]
  - Diarrhoea [Unknown]
  - Fatigue [Unknown]
  - Weight decreased [Unknown]
  - Decreased appetite [Unknown]
  - Asthenia [Unknown]

NARRATIVE: CASE EVENT DATE: 20241010
